FAERS Safety Report 16821291 (Version 3)
Quarter: 2021Q4

REPORT INFORMATION
  Report Type: Spontaneous
  Country: CZ (occurrence: CZ)
  Receive Date: 20190918
  Receipt Date: 20211217
  Transmission Date: 20220303
  Serious: Yes (Hospitalization, Other)
  Sender: FDA-Public Use
  Company Number: PHHY2019CZ216095

PATIENT
  Age: 30 Year
  Sex: Female

DRUGS (4)
  1. AMOXICILLIN [Suspect]
     Active Substance: AMOXICILLIN
     Indication: Mastitis
     Dosage: 700 MG, Q8H
     Route: 065
  2. AMOXICILLIN [Suspect]
     Active Substance: AMOXICILLIN
     Indication: Infection
  3. CEFUROXIME [Suspect]
     Active Substance: CEFUROXIME
     Indication: Mastitis
     Dosage: 500 MG, Q12H
     Route: 065
  4. DOSTINEX [Concomitant]
     Active Substance: CABERGOLINE
     Indication: Lactation inhibition therapy
     Dosage: UNK
     Route: 065

REACTIONS (4)
  - Cellulitis [Recovering/Resolving]
  - Mastitis [Recovering/Resolving]
  - Drug ineffective for unapproved indication [Unknown]
  - Drug ineffective [Unknown]
